FAERS Safety Report 5139674-9 (Version None)
Quarter: 2006Q4

REPORT INFORMATION
  Report Type: 
  Country: None (occurrence: None)
  Receive Date: 20061024
  Receipt Date: 20061009
  Transmission Date: 20070319
  Serious: Yes (Life-Threatening, Hospitalization)
  Sender: FDA-Public Use
  Company Number: TNZFR200600106

PATIENT
  Age: 80 Year
  Sex: Female
  Weight: 82.5 kg

DRUGS (7)
  1. INNOHEP [Suspect]
     Indication: THROMBOSIS
     Dosage: 16000 IU (ONCE DAILY), SUBCUTANEOUS
     Route: 058
     Dates: start: 20060906, end: 20060914
  2. PREVISCAN                        (FLUINDIONE) [Suspect]
     Indication: THROMBOSIS
     Dosage: 1 DOSAGE FORMS (1 DOSAGE FORMS, ONCE DAILY), ORAL
     Route: 048
     Dates: start: 20060914
  3. PHYSIOTENS             (MOXONIDINE) [Concomitant]
  4. ATARAX [Concomitant]
  5. LASIX [Concomitant]
  6. POTASSIUM CHLORIDE [Concomitant]
  7. TOPALGIC                       (TRAMADOL) [Concomitant]

REACTIONS (8)
  - ANAEMIA [None]
  - BLOOD FIBRINOGEN INCREASED [None]
  - CONDITION AGGRAVATED [None]
  - DRUG ADMINISTRATION ERROR [None]
  - HAEMATOMA [None]
  - INTERNATIONAL NORMALISED RATIO DECREASED [None]
  - RENAL FAILURE [None]
  - THROMBIN TIME PROLONGED [None]
